FAERS Safety Report 13065679 (Version 3)
Quarter: 2017Q4

REPORT INFORMATION
  Report Type: Report from Study
  Country: FR (occurrence: FR)
  Receive Date: 20161227
  Receipt Date: 20171122
  Transmission Date: 20180320
  Serious: Yes (Death, Hospitalization, Disabling, Other)
  Sender: FDA-Public Use
  Company Number: FR-BAYER-2016-044599

PATIENT
  Age: 71 Year
  Sex: Male
  Weight: 63.99 kg

DRUGS (17)
  1. ALBUMIN HUMAN [Concomitant]
     Active Substance: ALBUMIN HUMAN
     Dosage: 300 ML, QD
     Dates: start: 20160623, end: 20160624
  2. LEVOFLOXACIN. [Concomitant]
     Active Substance: LEVOFLOXACIN
     Dosage: DAILY DOSE 250 MG
     Dates: start: 20160901
  3. STIVARGA [Suspect]
     Active Substance: REGORAFENIB
     Indication: COLORECTAL CANCER METASTATIC
     Dosage: 80 MG, QD
     Route: 048
     Dates: start: 20160705, end: 20160808
  4. DIAMICRON [Concomitant]
     Active Substance: GLICLAZIDE
     Indication: DIABETES MELLITUS
     Dosage: 60 MG, QD
     Dates: start: 2012
  5. ASPIRINE PROTECT [Concomitant]
     Active Substance: ASPIRIN
     Indication: CORONARY ARTERY DISEASE
     Dosage: DAILY DOSE 100MG
     Dates: start: 1993
  6. DUPHALAC [Concomitant]
     Active Substance: LACTULOSE
     Dosage: TOTAL DAILY DOSE 20MG
     Dates: start: 20160229
  7. KARDEGIC [Concomitant]
     Active Substance: ASPIRIN DL-LYSINE
     Indication: CORONARY ARTERY DISEASE
     Dosage: 75 MG, QD
     Dates: start: 1993
  8. DIAMICRON [Concomitant]
     Active Substance: GLICLAZIDE
     Indication: DIABETES MELLITUS
     Dosage: DAILY DOSE 120MG
     Dates: start: 1992
  9. BI-TILDIEM [Concomitant]
     Active Substance: DILTIAZEM
     Indication: CORONARY ARTERY DISEASE
     Dosage: DAILY DOSE 120MG
     Dates: start: 1993
  10. STIVARGA [Suspect]
     Active Substance: REGORAFENIB
     Indication: COLORECTAL CANCER METASTATIC
     Dosage: 120MG (3 TABLETS 40MG)
     Route: 048
     Dates: start: 20160201, end: 20160205
  11. STIVARGA [Suspect]
     Active Substance: REGORAFENIB
     Indication: COLORECTAL CANCER METASTATIC
     Dosage: 120 MG, QD
     Route: 048
     Dates: start: 20160412, end: 20160517
  12. EUCERIN [UREA] [Concomitant]
     Indication: PROPHYLAXIS
     Dosage: UNK
     Dates: start: 20160203
  13. STIVARGA [Suspect]
     Active Substance: REGORAFENIB
     Indication: COLORECTAL CANCER METASTATIC
     Dosage: 80MG (2 TABLETS 40MG)
     Route: 048
     Dates: start: 20160218, end: 20160228
  14. STIVARGA [Suspect]
     Active Substance: REGORAFENIB
     Indication: COLORECTAL CANCER METASTATIC
     Dosage: 80 MG, QD
     Route: 048
     Dates: start: 20160311, end: 20160411
  15. JANUVIA [Concomitant]
     Active Substance: SITAGLIPTIN PHOSPHATE
     Indication: DIABETES MELLITUS
     Dosage: 100 MG, QD
     Dates: start: 2012
  16. JANUVIA [Concomitant]
     Active Substance: SITAGLIPTIN PHOSPHATE
     Indication: DIABETES MELLITUS
     Dosage: DAILY DOSE 100MG
     Dates: start: 1992
  17. RIFAXIMIN. [Concomitant]
     Active Substance: RIFAXIMIN
     Dosage: TOTAL DAILY DOSE 1100MG
     Dates: start: 20160301

REACTIONS (6)
  - Nephrotic syndrome [Recovered/Resolved]
  - Ascites [Recovered/Resolved]
  - Hepatic failure [Recovered/Resolved]
  - Multiple organ dysfunction syndrome [Fatal]
  - Hypoalbuminaemia [Not Recovered/Not Resolved]
  - Sepsis [Recovered/Resolved]

NARRATIVE: CASE EVENT DATE: 20160217
